FAERS Safety Report 23747036 (Version 1)
Quarter: 2024Q2

REPORT INFORMATION
  Report Type: Spontaneous
  Country: FR (occurrence: FR)
  Receive Date: 20240416
  Receipt Date: 20240416
  Transmission Date: 20240716
  Serious: Yes (Hospitalization, Other)
  Sender: FDA-Public Use
  Company Number: FR-EMA-20170317-hjainp-164549053

PATIENT
  Age: 34 Year
  Sex: Female

DRUGS (7)
  1. TACROLIMUS [Suspect]
     Active Substance: TACROLIMUS
     Indication: Lung transplant
     Dosage: 6 MG, TWICE DAILY (6MG 8H-6MG 20H)
  2. TACROLIMUS [Suspect]
     Active Substance: TACROLIMUS
     Indication: Immunosuppressant drug therapy
     Dosage: UNK
  3. PREDNISOLONE [Suspect]
     Active Substance: PREDNISOLONE
     Indication: Immunosuppressant drug therapy
     Dosage: 7.5 MG DAILY
  4. PREDNISOLONE [Suspect]
     Active Substance: PREDNISOLONE
     Indication: Lung transplant
     Dosage: 7.5 MG DAILY
  5. MYCOPHENOLATE MOFETIL [Suspect]
     Active Substance: MYCOPHENOLATE MOFETIL
     Indication: Lung transplant
     Dosage: 1000 MILLIGRAM, QD
  6. MYCOPHENOLATE MOFETIL [Suspect]
     Active Substance: MYCOPHENOLATE MOFETIL
     Indication: Immunosuppressant drug therapy
     Dosage: 1000 MILLIGRAM, QD
  7. EVEROLIMUS [Concomitant]
     Active Substance: EVEROLIMUS
     Indication: Cytomegalovirus infection
     Dosage: UNK

REACTIONS (20)
  - Cholelithiasis [Unknown]
  - Cholecystitis chronic [Unknown]
  - Oedematous kidney [Unknown]
  - Cholecystitis acute [Unknown]
  - C-reactive protein increased [Unknown]
  - Necrosis [Unknown]
  - Drug resistance [Unknown]
  - Alanine aminotransferase increased [Unknown]
  - Aspartate aminotransferase increased [Unknown]
  - Pyrexia [Recovered/Resolved]
  - Abdominal tenderness [Recovered/Resolved]
  - Abdominal pain [Unknown]
  - Nausea [Unknown]
  - Hepatitis viral [Recovered/Resolved]
  - Cytomegalovirus infection [Unknown]
  - Vomiting [Recovered/Resolved]
  - Herpes simplex [Recovered/Resolved]
  - Diarrhoea [Unknown]
  - Herpes simplex hepatitis [Recovered/Resolved]
  - Off label use [Unknown]
